FAERS Safety Report 23569856 (Version 1)
Quarter: 2024Q1

REPORT INFORMATION
  Report Type: Spontaneous
  Country: GB (occurrence: GB)
  Receive Date: 20240227
  Receipt Date: 20240227
  Transmission Date: 20240409
  Serious: Yes (Other)
  Sender: FDA-Public Use
  Company Number: GB-MYLANLABS-2023M1078418

PATIENT
  Age: 38 Year
  Sex: Male

DRUGS (68)
  1. HALOPERIDOL [Suspect]
     Active Substance: HALOPERIDOL
     Indication: Product used for unknown indication
     Dosage: UNK,
     Route: 065
     Dates: start: 20230401
  2. LORAZEPAM [Suspect]
     Active Substance: LORAZEPAM
     Indication: Product used for unknown indication
     Dosage: ( (PO/IM) 1-2MG (MAX 4MG IN 24 HOURS),
     Route: 065
     Dates: start: 201509
  3. RISPERIDONE [Suspect]
     Active Substance: RISPERIDONE
     Indication: Product used for unknown indication
     Dosage: UNK,
     Route: 065
     Dates: start: 201302
  4. RISPERIDONE [Suspect]
     Active Substance: RISPERIDONE
     Indication: Product used for unknown indication
     Dosage: UNK,\
     Route: 065
     Dates: start: 200210
  5. VALPROATE SODIUM [Suspect]
     Active Substance: VALPROATE SODIUM
     Indication: Product used for unknown indication
     Route: 065
     Dates: start: 201605
  6. VALPROATE SODIUM [Suspect]
     Active Substance: VALPROATE SODIUM
     Indication: Product used for unknown indication
     Route: 065
     Dates: start: 201607
  7. VALPROATE SODIUM [Suspect]
     Active Substance: VALPROATE SODIUM
     Indication: Product used for unknown indication
     Route: 065
     Dates: start: 201606
  8. VALPROATE SODIUM [Suspect]
     Active Substance: VALPROATE SODIUM
     Indication: Product used for unknown indication
     Route: 065
     Dates: start: 202303, end: 202305
  9. CHOLECALCIFEROL [Concomitant]
     Active Substance: CHOLECALCIFEROL
  10. FLEXITOL HEEL BALM [Concomitant]
  11. FOLIC ACID\IRON\MINERALS\VITAMINS [Concomitant]
     Active Substance: FOLIC ACID\IRON\MINERALS\VITAMINS
  12. LACTULOSE [Concomitant]
     Active Substance: LACTULOSE
     Dosage: 15 MILLILITER (MAX THREE TIMES DAILY)
  13. ACETAMINOPHEN [Concomitant]
     Active Substance: ACETAMINOPHEN
     Dosage: 1 GRAM (MAX 4G IN 24 HOURS)
  14. PROCYCLIDINE [Concomitant]
     Active Substance: PROCYCLIDINE
     Dosage: 2.5 MILLIGRAM (MAX 10MG IN 24 HOURS)
  15. PROMETHAZINE [Concomitant]
     Active Substance: PROMETHAZINE HYDROCHLORIDE
  16. THIAMINE [Concomitant]
     Active Substance: THIAMINE
  17. AMISULPRIDE [Suspect]
     Active Substance: AMISULPRIDE
     Indication: Affective disorder
     Dosage: 200MG TWICE DAILY, 600MG AT NIGHT,
     Route: 065
     Dates: start: 201605
  18. AMISULPRIDE [Suspect]
     Active Substance: AMISULPRIDE
     Indication: Affective disorder
     Dosage: UNK THERAPY END DATE: NOT ASKED
     Route: 065
     Dates: start: 202201
  19. AMISULPRIDE [Suspect]
     Active Substance: AMISULPRIDE
     Indication: Affective disorder
     Route: 065
     Dates: start: 201509
  20. AMISULPRIDE [Suspect]
     Active Substance: AMISULPRIDE
     Indication: Affective disorder
     Route: 065
     Dates: start: 201407, end: 201503
  21. AMISULPRIDE [Suspect]
     Active Substance: AMISULPRIDE
     Indication: Affective disorder
     Route: 065
     Dates: start: 200307
  22. AMISULPRIDE [Suspect]
     Active Substance: AMISULPRIDE
     Indication: Affective disorder
     Route: 065
     Dates: start: 200505
  23. AMISULPRIDE [Suspect]
     Active Substance: AMISULPRIDE
     Indication: Affective disorder
     Dosage: 100MG IN THE MORNING, 400MG AT NIGHT, THERAPY END DATE: NOT ASKED
     Route: 065
     Dates: start: 201607
  24. AMISULPRIDE [Suspect]
     Active Substance: AMISULPRIDE
     Indication: Affective disorder
     Dosage: DAILY,
     Route: 065
     Dates: start: 200411
  25. AMISULPRIDE [Suspect]
     Active Substance: AMISULPRIDE
     Indication: Affective disorder
     Route: 065
     Dates: start: 200301
  26. AMISULPRIDE [Suspect]
     Active Substance: AMISULPRIDE
     Indication: Affective disorder
     Route: 065
     Dates: start: 2013
  27. AMISULPRIDE [Suspect]
     Active Substance: AMISULPRIDE
     Indication: Affective disorder
     Dosage: 200MG IN THE MORNING, 600MG AT NIGHT THERAPY END DATE: NOT ASKED
     Route: 065
     Dates: start: 201606
  28. AMISULPRIDE [Suspect]
     Active Substance: AMISULPRIDE
     Indication: Affective disorder
     Dosage: UNKNOWN DOSE IN THE MORNING, 100MG IN THE EVENING,
     Route: 065
     Dates: start: 200311
  29. AMISULPRIDE [Suspect]
     Active Substance: AMISULPRIDE
     Indication: Affective disorder
     Route: 065
     Dates: start: 200407
  30. CITALOPRAM [Suspect]
     Active Substance: CITALOPRAM HYDROBROMIDE
     Indication: Depressed mood
     Route: 065
     Dates: start: 200407
  31. CITALOPRAM [Suspect]
     Active Substance: CITALOPRAM HYDROBROMIDE
     Indication: Depressed mood
     Route: 065
     Dates: start: 200505
  32. CITALOPRAM [Suspect]
     Active Substance: CITALOPRAM HYDROBROMIDE
     Indication: Depressed mood
     Route: 065
     Dates: start: 201407, end: 201503
  33. CITALOPRAM [Suspect]
     Active Substance: CITALOPRAM HYDROBROMIDE
     Indication: Depressed mood
     Route: 065
     Dates: start: 200301
  34. CITALOPRAM [Suspect]
     Active Substance: CITALOPRAM HYDROBROMIDE
     Indication: Depressed mood
     Route: 065
     Dates: start: 200411
  35. CITALOPRAM [Suspect]
     Active Substance: CITALOPRAM HYDROBROMIDE
     Indication: Depressed mood
     Dosage: UNK
     Route: 065
     Dates: start: 2013
  36. CITALOPRAM [Suspect]
     Active Substance: CITALOPRAM HYDROBROMIDE
     Indication: Depressed mood
     Route: 065
     Dates: start: 200311
  37. CARIPRAZINE [Suspect]
     Active Substance: CARIPRAZINE
     Indication: Product used for unknown indication
     Route: 065
     Dates: start: 202212, end: 202303
  38. CARIPRAZINE [Suspect]
     Active Substance: CARIPRAZINE
     Indication: Product used for unknown indication
     Route: 065
     Dates: start: 202303, end: 202305
  39. CARIPRAZINE [Suspect]
     Active Substance: CARIPRAZINE
     Indication: Product used for unknown indication
     Route: 065
     Dates: start: 202208
  40. CLOZARIL [Suspect]
     Active Substance: CLOZAPINE
     Indication: Schizophrenia
     Dosage: DOSAGE TEXT: 200MG IN THE MORNING, 300MG AT NIGHT )THERAPY END DATE: NOT ASKED
     Route: 065
     Dates: start: 201605
  41. CLOZARIL [Suspect]
     Active Substance: CLOZAPINE
     Indication: Schizophrenia
     Dosage: DOSAGE TEXT: 200MG IN THE MORNING, 300MG AT NIGHT, THERAPY END DATE: NOT ASKED
     Route: 065
     Dates: start: 201606
  42. CLOZARIL [Suspect]
     Active Substance: CLOZAPINE
     Indication: Schizophrenia
     Dosage: 100MG IN THE MORNING, 400MG IN THE EVENING
     Route: 065
     Dates: start: 200311
  43. CLOZARIL [Suspect]
     Active Substance: CLOZAPINE
     Indication: Schizophrenia
     Dosage: DOSAGE TEXT: 50MG IN THE MORNING, 250MG IN THE EVENING,THERAPY END DATE: NOT ASKED
     Route: 065
     Dates: start: 201509
  44. CLOZARIL [Suspect]
     Active Substance: CLOZAPINE
     Indication: Schizophrenia
     Dosage: DOSAGE TEXT: 250 MILLIGRAM, QD (250MG IN THE EVENING,THERAPY END DATE: NOT ASKED
     Route: 065
     Dates: start: 200909
  45. CLOZARIL [Suspect]
     Active Substance: CLOZAPINE
     Indication: Schizophrenia
     Dosage: 350 MILLIGRAM, QD (350MG IN THE EVENING)
     Route: 065
     Dates: start: 200605
  46. CLOZARIL [Suspect]
     Active Substance: CLOZAPINE
     Indication: Schizophrenia
     Dosage: DOSAGE TEXT: 200 MILLIGRAM, QD (200MG IN THE EVENING)
     Route: 065
     Dates: start: 201012, end: 201201
  47. CLOZARIL [Suspect]
     Active Substance: CLOZAPINE
     Indication: Schizophrenia
     Dosage: DOSAGE TEXT: 500 MILLIGRAM, QD (500MG DAILY)THERAPY END DATE: NOT ASKED
     Route: 065
     Dates: start: 2013
  48. CLOZARIL [Suspect]
     Active Substance: CLOZAPINE
     Indication: Schizophrenia
     Dosage: DOSAGE TEXT: 200MG IN THE MORNING, 300MG AT NIGHT,THERAPY END DATE: NOT ASKED
     Route: 065
     Dates: start: 201607
  49. CLOZARIL [Suspect]
     Active Substance: CLOZAPINE
     Indication: Schizophrenia
     Dosage: 100MG IN THE MORNING, 400MG IN THE EVENING
     Route: 065
     Dates: start: 200411
  50. CLOZARIL [Suspect]
     Active Substance: CLOZAPINE
     Indication: Schizophrenia
     Dosage: DOSAGE TEXT: 400 MILLIGRAM, QD (400MG AT NIGHT) THERAPY END DATE: NOT ASKED
     Route: 065
     Dates: start: 201701
  51. CLOZARIL [Suspect]
     Active Substance: CLOZAPINE
     Indication: Schizophrenia
     Dosage: IN THE EVENING,
     Route: 065
     Dates: start: 200806
  52. CLOZARIL [Suspect]
     Active Substance: CLOZAPINE
     Indication: Schizophrenia
     Dosage: DOSAGE TEXT: 100MG IN THE MORNING, 300MG AT NIGHT
     Route: 065
     Dates: start: 201407, end: 201503
  53. CLOZARIL [Suspect]
     Active Substance: CLOZAPINE
     Indication: Schizophrenia
     Dosage: 375 MILLIGRAM, QD (375MG IN THE EVENING),
     Route: 065
     Dates: start: 200605
  54. CLOZARIL [Suspect]
     Active Substance: CLOZAPINE
     Indication: Schizophrenia
     Dosage: DOSAGE TEXT: 275 MILLIGRAM, QD (275MG IN THE EVENING),THERAPY END DATE: NOT ASKED
     Route: 065
     Dates: start: 200811
  55. CLOZARIL [Suspect]
     Active Substance: CLOZAPINE
     Indication: Schizophrenia
     Dosage: 100MG IN THE MORNING, 400MG IN THE EVENING,
     Route: 065
     Dates: start: 200307
  56. CLOZARIL [Suspect]
     Active Substance: CLOZAPINE
     Indication: Schizophrenia
     Dosage: 100MG IN THE MORNING, 400MG IN THE EVENING
     Route: 065
     Dates: start: 200407
  57. CLOZARIL [Suspect]
     Active Substance: CLOZAPINE
     Indication: Schizophrenia
     Dosage: 100MG IN THE MORNING, 400MG IN THE EVENING
     Route: 065
     Dates: start: 200505
  58. CLOZARIL [Suspect]
     Active Substance: CLOZAPINE
     Indication: Schizophrenia
     Dosage: DOSAGE TEXT: 450 MILLIGRAM, QD (450MG AT NIGHT) THERAPY END DATE: NOT ASKED
     Route: 065
     Dates: start: 2019
  59. CLOZARIL [Suspect]
     Active Substance: CLOZAPINE
     Indication: Schizophrenia
     Dosage: 100MG IN THE MORNING, 400MG IN THE EVENING,
     Route: 065
     Dates: start: 200511
  60. CLOZARIL [Suspect]
     Active Substance: CLOZAPINE
     Indication: Schizophrenia
     Dosage: DOSAGE TEXT: UNK THERAPY END DATE: NOT ASKED
     Route: 048
     Dates: start: 20230720
  61. CLOZARIL [Suspect]
     Active Substance: CLOZAPINE
     Indication: Schizophrenia
     Dosage: DOSAGE TEXT: 225 MILLIGRAM, QD (225MG IN THE EVENING,THERAPY END DATE: NOT ASKED
     Route: 065
     Dates: start: 201008
  62. CLOZARIL [Suspect]
     Active Substance: CLOZAPINE
     Indication: Schizophrenia
     Dosage: DOSAGE TEXT: 200MG IN THE MORNING, 300MG AT NIGHT,THERAPY END DATE: NOT ASKED
     Route: 065
     Dates: start: 201611
  63. CLOZARIL [Suspect]
     Active Substance: CLOZAPINE
     Indication: Schizophrenia
     Dosage: DOSAGE TEXT: 225 MILLIGRAM, BID (225MG TWICE DAILY)
     Route: 065
     Dates: start: 201910, end: 20220112
  64. CLOZARIL [Suspect]
     Active Substance: CLOZAPINE
     Indication: Schizophrenia
     Dosage: 100MG IN THE MORNING, 400MG IN THE EVENING
     Route: 065
     Dates: start: 200301
  65. FERROUS SULFATE [Suspect]
     Active Substance: FERROUS SULFATE
     Indication: Product used for unknown indication
     Dosage: UNK
     Route: 065
  66. FLUPENTIXOL DECANOATE [Suspect]
     Active Substance: FLUPENTIXOL DECANOATE
     Indication: Product used for unknown indication
     Route: 065
     Dates: start: 202303, end: 202305
  67. FLUPENTIXOL DECANOATE [Suspect]
     Active Substance: FLUPENTIXOL DECANOATE
     Indication: Product used for unknown indication
     Route: 065
     Dates: start: 202208
  68. FLUPENTIXOL DECANOATE [Suspect]
     Active Substance: FLUPENTIXOL DECANOATE
     Indication: Product used for unknown indication
     Route: 065
     Dates: start: 202212, end: 202303

REACTIONS (34)
  - Delusion [Not Recovered/Not Resolved]
  - Drug ineffective [Unknown]
  - COVID-19 [Unknown]
  - Dystonia [Unknown]
  - Mental impairment [Unknown]
  - Treatment noncompliance [Unknown]
  - Cardiac arrest [Unknown]
  - Accidental exposure to product [Unknown]
  - Thinking abnormal [Not Recovered/Not Resolved]
  - Weight decreased [Unknown]
  - Eating disorder [Unknown]
  - Insomnia [Unknown]
  - Withdrawal syndrome [Unknown]
  - Strabismus [Unknown]
  - Slow speech [Unknown]
  - Orthostatic hypotension [Unknown]
  - Acne [Unknown]
  - Vitamin D decreased [Unknown]
  - Red blood cell sedimentation rate decreased [Unknown]
  - Psoriasis [Unknown]
  - Depressed mood [Unknown]
  - Sedation [Unknown]
  - Suicidal ideation [Unknown]
  - Neutrophil count decreased [Not Recovered/Not Resolved]
  - Lymphocyte count decreased [Unknown]
  - Blood prolactin increased [Unknown]
  - Drug ineffective [Unknown]
  - Off label use [Unknown]
  - Overdose [Unknown]
  - Delusion of grandeur [Unknown]
  - Hallucination, auditory [Not Recovered/Not Resolved]
  - Neglect of personal appearance [Unknown]
  - Pneumonia aspiration [Unknown]
  - Aggression [Unknown]

NARRATIVE: CASE EVENT DATE: 20021001
